FAERS Safety Report 4331938-1 (Version None)
Quarter: 2004Q2

REPORT INFORMATION
  Report Type: 
  Country: None (occurrence: None)
  Receive Date: 20040405
  Receipt Date: 20030605
  Transmission Date: 20050107
  Serious: No
  Sender: FDA-Public Use
  Company Number: US-GLAXOSMITHKLINE-A0411583A

PATIENT
  Age: 79 Year
  Sex: Female

DRUGS (4)
  1. SEREVENT [Suspect]
     Indication: ASTHMA
     Dosage: 2PUFF TWICE PER DAY
     Route: 055
     Dates: start: 20020601, end: 20030501
  2. ALBUTEROL [Suspect]
     Indication: ASTHMA
     Route: 055
     Dates: start: 20030601, end: 20030601
  3. ANTIVERT [Concomitant]
  4. MECLIZINE [Concomitant]

REACTIONS (2)
  - DIZZINESS [None]
  - TREMOR [None]
